FAERS Safety Report 24005958 (Version 1)
Quarter: 2024Q2

REPORT INFORMATION
  Report Type: Spontaneous
  Country: JP (occurrence: JP)
  Receive Date: 20240624
  Receipt Date: 20240624
  Transmission Date: 20240716
  Serious: Yes (Hospitalization, Other)
  Sender: FDA-Public Use
  Company Number: JP-PMDA-i2410000151001

PATIENT
  Age: 67 Year
  Sex: Female
  Weight: 69.4 kg

DRUGS (48)
  1. DOXORUBICIN [Suspect]
     Active Substance: DOXORUBICIN
     Indication: Chemotherapy
     Dosage: 85 MG, 1 EVERY 1 DAY, DOSAGE FORM: INJECTION
     Route: 041
     Dates: start: 20231017
  2. DOXORUBICIN [Suspect]
     Active Substance: DOXORUBICIN
     Indication: Breast cancer female
     Dosage: 85 MG, 1 EVERY 1 DAY, DOSAGE FORM: INJECTION
     Route: 041
     Dates: start: 20231107, end: 20231107
  3. CYCLOPHOSPHAMIDE [Suspect]
     Active Substance: CYCLOPHOSPHAMIDE
     Indication: Chemotherapy
     Dosage: 850 MG, 1 EVERY 1 DAY,
     Route: 041
     Dates: start: 20231017
  4. CYCLOPHOSPHAMIDE [Suspect]
     Active Substance: CYCLOPHOSPHAMIDE
     Indication: Breast cancer female
     Dosage: 850 MG, 1 EVERY 1 DAY
     Route: 041
     Dates: start: 20231107, end: 20231107
  5. KEYTRUDA [Suspect]
     Active Substance: PEMBROLIZUMAB
     Indication: Chemotherapy
     Dosage: 200 MG/DAY, GENETICAL RECOMBINATION
     Route: 041
     Dates: start: 20230712
  6. KEYTRUDA [Suspect]
     Active Substance: PEMBROLIZUMAB
     Indication: Breast cancer female
     Dosage: 200 MG/DAY, GENETICAL RECOMBINATION
     Route: 041
     Dates: start: 20230807
  7. KEYTRUDA [Suspect]
     Active Substance: PEMBROLIZUMAB
     Dosage: 200 MG/DAY, GENETICAL RECOMBINATION
     Route: 041
     Dates: start: 20230828
  8. KEYTRUDA [Suspect]
     Active Substance: PEMBROLIZUMAB
     Dosage: 200 MG/DAY, GENETICAL RECOMBINATION
     Route: 041
     Dates: start: 20230925
  9. KEYTRUDA [Suspect]
     Active Substance: PEMBROLIZUMAB
     Dosage: 200 MG/DAY, GENETICAL RECOMBINATION
     Route: 041
     Dates: start: 20231017
  10. KEYTRUDA [Suspect]
     Active Substance: PEMBROLIZUMAB
     Dosage: 200 MG/DAY, GENETICAL RECOMBINATION
     Route: 041
     Dates: start: 20231107, end: 20231107
  11. PACLITAXEL [Suspect]
     Active Substance: PACLITAXEL
     Indication: Chemotherapy
     Dosage: 120 MG
     Route: 065
     Dates: start: 20230712
  12. PACLITAXEL [Suspect]
     Active Substance: PACLITAXEL
     Indication: Breast cancer female
     Dosage: 120 MG
     Route: 065
     Dates: start: 20230721
  13. PACLITAXEL [Suspect]
     Active Substance: PACLITAXEL
     Dosage: 120 MG
     Route: 065
     Dates: start: 20230728
  14. PACLITAXEL [Suspect]
     Active Substance: PACLITAXEL
     Dosage: 120 MG
     Route: 065
     Dates: start: 20230807
  15. PACLITAXEL [Suspect]
     Active Substance: PACLITAXEL
     Dosage: 120 MG
     Route: 065
     Dates: start: 20230814
  16. PACLITAXEL [Suspect]
     Active Substance: PACLITAXEL
     Dosage: 120 MG
     Route: 065
     Dates: start: 20230821
  17. PACLITAXEL [Suspect]
     Active Substance: PACLITAXEL
     Dosage: 120 MG
     Route: 065
     Dates: start: 20230828
  18. PACLITAXEL [Suspect]
     Active Substance: PACLITAXEL
     Dosage: 120 MG
     Route: 065
     Dates: start: 20230904
  19. PACLITAXEL [Suspect]
     Active Substance: PACLITAXEL
     Dosage: 120 MG
     Route: 065
     Dates: start: 20230911
  20. PACLITAXEL [Suspect]
     Active Substance: PACLITAXEL
     Dosage: 120 MG
     Route: 065
     Dates: start: 20230925
  21. PACLITAXEL [Suspect]
     Active Substance: PACLITAXEL
     Dosage: 120 MG
     Route: 065
     Dates: start: 20231002
  22. PACLITAXEL [Suspect]
     Active Substance: PACLITAXEL
     Dosage: 120 MG
     Route: 065
     Dates: start: 20231010
  23. CARBOPLATIN [Suspect]
     Active Substance: CARBOPLATIN
     Indication: Chemotherapy
     Dosage: 100 MG
     Route: 065
     Dates: start: 20230712
  24. CARBOPLATIN [Suspect]
     Active Substance: CARBOPLATIN
     Indication: Breast cancer female
     Dosage: 100 MG
     Route: 065
     Dates: start: 20230721
  25. CARBOPLATIN [Suspect]
     Active Substance: CARBOPLATIN
     Dosage: 100 MG
     Route: 065
     Dates: start: 20230728
  26. CARBOPLATIN [Suspect]
     Active Substance: CARBOPLATIN
     Dosage: 100 MG
     Route: 065
     Dates: start: 20230807
  27. CARBOPLATIN [Suspect]
     Active Substance: CARBOPLATIN
     Dosage: 100 MG
     Route: 065
     Dates: start: 20230814
  28. CARBOPLATIN [Suspect]
     Active Substance: CARBOPLATIN
     Dosage: 100 MG
     Route: 065
     Dates: start: 20230821
  29. CARBOPLATIN [Suspect]
     Active Substance: CARBOPLATIN
     Dosage: 100 MG
     Route: 065
     Dates: start: 20230828
  30. CARBOPLATIN [Suspect]
     Active Substance: CARBOPLATIN
     Dosage: 100 MG
     Route: 065
     Dates: start: 20230904
  31. CARBOPLATIN [Suspect]
     Active Substance: CARBOPLATIN
     Dosage: 100 MG
     Route: 065
     Dates: start: 20230911
  32. CARBOPLATIN [Suspect]
     Active Substance: CARBOPLATIN
     Dosage: 100 MG
     Route: 065
     Dates: start: 20230925
  33. CARBOPLATIN [Suspect]
     Active Substance: CARBOPLATIN
     Dosage: 100 MG
     Route: 065
     Dates: start: 20231002
  34. CARBOPLATIN [Suspect]
     Active Substance: CARBOPLATIN
     Dosage: 100 MG
     Route: 065
     Dates: start: 20231010
  35. DEXAMETHASONE SODIUM PHOSPHATE [Concomitant]
     Active Substance: DEXAMETHASONE PHOSPHATE\DEXAMETHASONE SODIUM PHOSPHATE
     Dosage: 3.3 MG, 8 HOURS
     Route: 065
  36. GRANISETRON HYDROCHLORIDE [Concomitant]
     Active Substance: GRANISETRON HYDROCHLORIDE
     Dosage: 1 MG, 1 EVERY 1 DAY,
     Route: 065
  37. PEGFILGRASTIM [Concomitant]
     Active Substance: PEGFILGRASTIM
     Dosage: 3.6 MG, 1 EVERY 1 DAY
     Route: 065
  38. AMLODIPINE [Concomitant]
     Active Substance: AMLODIPINE BESYLATE
     Dosage: UNK
     Route: 065
  39. ICOSAPENT ETHYL [Concomitant]
     Active Substance: ICOSAPENT ETHYL
     Dosage: UNK
     Route: 065
  40. URSODIOL [Concomitant]
     Active Substance: URSODIOL
     Dosage: UNK
     Route: 065
  41. ESOMEPRAZOLE [Concomitant]
     Active Substance: ESOMEPRAZOLE
     Dosage: UNK
     Route: 065
  42. OLMESARTAN MEDOXOMIL [Concomitant]
     Active Substance: OLMESARTAN MEDOXOMIL
     Dosage: UNK
     Route: 065
  43. MAGNESIUM OXIDE [Concomitant]
     Active Substance: MAGNESIUM OXIDE
     Dosage: UNK
     Route: 065
  44. ASPIRIN [Concomitant]
     Active Substance: ASPIRIN
     Dosage: UNK, DOSAGE FORM: ENTERIC COATING DRUG
     Route: 065
  45. FEBUXOSTAT [Concomitant]
     Active Substance: FEBUXOSTAT
     Dosage: UNK
     Route: 065
  46. JUVELA [Concomitant]
     Active Substance: .ALPHA.-TOCOPHEROL\RETINOL
     Dosage: UNK
     Route: 065
  47. ROSUVASTATIN [Concomitant]
     Active Substance: ROSUVASTATIN
     Dosage: UNK
     Route: 065
  48. FLUTICASONE FUROATE [Concomitant]
     Active Substance: FLUTICASONE FUROATE
     Dosage: UNK
     Route: 065

REACTIONS (2)
  - Tubulointerstitial nephritis [Not Recovered/Not Resolved]
  - Renal impairment [Recovering/Resolving]

NARRATIVE: CASE EVENT DATE: 20231128
